FAERS Safety Report 9532124 (Version 1)
Quarter: 2013Q3

REPORT INFORMATION
  Report Type: Spontaneous
  Country: US (occurrence: US)
  Receive Date: 20130918
  Receipt Date: 20130918
  Transmission Date: 20140515
  Serious: Yes (Hospitalization)
  Sender: FDA-Public Use
  Company Number: US-PFIZER INC-2013265508

PATIENT
  Age: 56 Year
  Sex: Female
  Weight: 68.93 kg

DRUGS (3)
  1. FLAGYL [Suspect]
     Indication: DIVERTICULITIS
     Dosage: 500 MG, 2X/DAY
     Route: 048
     Dates: start: 20130304, end: 20130815
  2. FLAGYL [Suspect]
     Indication: DIVERTICULITIS
     Dosage: UNK
     Route: 042
     Dates: start: 201303, end: 201303
  3. LIPITOR [Concomitant]
     Indication: BLOOD CHOLESTEROL ABNORMAL
     Dosage: 10 MG, 1X/DAY

REACTIONS (3)
  - Drug ineffective [Unknown]
  - Mastication disorder [Recovered/Resolved]
  - Pain in jaw [Recovered/Resolved]
